FAERS Safety Report 6687349-7 (Version None)
Quarter: 2010Q2

REPORT INFORMATION
  Report Type: 
  Country: None (occurrence: None)
  Receive Date: 20100415
  Receipt Date: 20100406
  Transmission Date: 20101027
  Serious: Yes (Hospitalization)
  Sender: FDA-Public Use
  Company Number: 8053637

PATIENT
  Sex: Male
  Weight: 130 kg

DRUGS (8)
  1. CERTOLIZUMAB PEGOL (CERTOLIZUMAB PEGOL) [Suspect]
     Indication: RHEUMATOID ARTHRITIS
     Dosage: (400 MG, DOSE FREQ: ONCE MONTHLY SUBCUTANEOUS)
     Route: 058
     Dates: start: 20030710
  2. HUMALOG [Concomitant]
  3. METFORMIN [Concomitant]
  4. ACTOS [Concomitant]
  5. LEVEMIR [Concomitant]
  6. MICARDIS [Concomitant]
  7. FUROSEMIDE [Concomitant]
  8. PANTOPRAZOLE [Concomitant]

REACTIONS (13)
  - ELECTROCARDIOGRAM POOR R-WAVE PROGRESSION [None]
  - ELECTROCARDIOGRAM T WAVE AMPLITUDE DECREASED [None]
  - GASTRITIS [None]
  - GLOSSITIS [None]
  - HAEMOGLOBIN DECREASED [None]
  - HYPERGLYCAEMIA [None]
  - HYPERPLASIA [None]
  - LEUKOPLAKIA ORAL [None]
  - OEDEMA [None]
  - POST PROCEDURAL COMPLICATION [None]
  - PROCEDURAL COMPLICATION [None]
  - ROAD TRAFFIC ACCIDENT [None]
  - STERNAL FRACTURE [None]
